FAERS Safety Report 9351256 (Version 1)
Quarter: 2013Q2

REPORT INFORMATION
  Report Type: Spontaneous
  Country: CN (occurrence: CN)
  Receive Date: 20130617
  Receipt Date: 20130617
  Transmission Date: 20140414
  Serious: Yes (Other)
  Sender: FDA-Public Use
  Company Number: PHHY2013CN059248

PATIENT
  Age: 66 Year
  Sex: Female

DRUGS (1)
  1. SIMVASTATIN [Suspect]
     Indication: HYPERLIPIDAEMIA
     Dosage: 80 MG, EVERY NIGHT
     Route: 048

REACTIONS (5)
  - Sciatica [Recovering/Resolving]
  - Pain in extremity [Recovering/Resolving]
  - Rhabdomyolysis [Unknown]
  - Back pain [Recovering/Resolving]
  - Asthenia [Unknown]
